FAERS Safety Report 5282271-5 (Version None)
Quarter: 2007Q1

REPORT INFORMATION
  Report Type: 
  Country: None (occurrence: None)
  Receive Date: 20070331
  Receipt Date: 20070320
  Transmission Date: 20070707
  Serious: Yes (Other)
  Sender: FDA-Public Use
  Company Number: DE-PFIZER INC-2007023259

PATIENT
  Sex: Female
  Weight: 85 kg

DRUGS (1)
  1. LYRICA [Suspect]
     Route: 048
     Dates: start: 20070317, end: 20070319

REACTIONS (6)
  - CARDIOVASCULAR INSUFFICIENCY [None]
  - DISSOCIATION [None]
  - DIZZINESS [None]
  - DYSSTASIA [None]
  - HYPOKINESIA [None]
  - STARING [None]
